FAERS Safety Report 25960282 (Version 1)
Quarter: 2025Q4

REPORT INFORMATION
  Report Type: Report from Study
  Country: US (occurrence: US)
  Receive Date: 20251026
  Receipt Date: 20251026
  Transmission Date: 20260118
  Serious: Yes (Other)
  Sender: ABBVIE
  Company Number: US-ABBVIE-6445438

PATIENT
  Age: 58 Year
  Sex: Female

DRUGS (1)
  1. RINVOQ [Suspect]
     Active Substance: UPADACITINIB
     Indication: Psoriatic arthropathy
     Route: 048
     Dates: start: 20240812

REACTIONS (10)
  - Arthropathy [Not Recovered/Not Resolved]
  - Rash papular [Unknown]
  - Wound dehiscence [Not Recovered/Not Resolved]
  - Pruritus [Unknown]
  - Psoriatic arthropathy [Not Recovered/Not Resolved]
  - Skin burning sensation [Unknown]
  - Swelling [Not Recovered/Not Resolved]
  - Neuralgia [Unknown]
  - Dry skin [Unknown]
  - Pain [Not Recovered/Not Resolved]

NARRATIVE: CASE EVENT DATE: 20250101
